FAERS Safety Report 4562489-7 (Version None)
Quarter: 2005Q1

REPORT INFORMATION
  Report Type: 
  Country: None (occurrence: None)
  Receive Date: 20050127
  Receipt Date: 20050117
  Transmission Date: 20050727
  Serious: Yes (Death, Hospitalization, Other)
  Sender: FDA-Public Use
  Company Number: FR-ABBOTT-05P-056-0287027-00

PATIENT
  Age: 60 Year
  Sex: Female

DRUGS (7)
  1. DEPAKENE [Suspect]
     Indication: METASTASES TO CENTRAL NERVOUS SYSTEM
     Route: 048
     Dates: start: 20031201, end: 20040101
  2. DEPAKENE [Suspect]
     Route: 048
     Dates: start: 20031210
  3. ALDACTAZINE [Concomitant]
     Indication: DRUG USE FOR UNKNOWN INDICATION
     Route: 048
     Dates: start: 20031001, end: 20040103
  4. DIGOXIN [Concomitant]
     Indication: DRUG USE FOR UNKNOWN INDICATION
     Route: 048
     Dates: start: 20031001, end: 20040103
  5. PYRIDOSTIGMINE BROMIDE [Concomitant]
     Indication: CONSTIPATION
     Route: 048
     Dates: start: 20031001, end: 20040103
  6. MACROGOL [Concomitant]
     Indication: CONSTIPATION
     Route: 048
     Dates: start: 20031001, end: 20040103
  7. PANTOPRAZOLE [Concomitant]
     Indication: GASTRITIS
     Route: 048
     Dates: start: 20031001, end: 20040103

REACTIONS (9)
  - DRUG INEFFECTIVE [None]
  - DYSPHAGIA [None]
  - FACE OEDEMA [None]
  - LEUKOCYTOSIS [None]
  - LEUKOPENIA [None]
  - NIKOLSKY'S SIGN [None]
  - PHOTOPHOBIA [None]
  - PYREXIA [None]
  - STEVENS-JOHNSON SYNDROME [None]
